FAERS Safety Report 14348079 (Version 1)
Quarter: 2018Q1

REPORT INFORMATION
  Report Type: Spontaneous
  Country: US (occurrence: US)
  Receive Date: 20180103
  Receipt Date: 20180103
  Transmission Date: 20180509
  Serious: No
  Sender: FDA-Public Use
  Company Number: US-ABBVIE-17P-163-2023235-00

PATIENT
  Age: 76 Year
  Sex: Male

DRUGS (4)
  1. XTANDI [Suspect]
     Active Substance: ENZALUTAMIDE
     Route: 048
  2. LUPRON DEPOT [Suspect]
     Active Substance: LEUPROLIDE ACETATE
     Indication: PROSTATE CANCER
     Route: 030
     Dates: start: 20160622
  3. XTANDI [Suspect]
     Active Substance: ENZALUTAMIDE
     Indication: PROSTATE CANCER
     Route: 048
     Dates: start: 20161129
  4. XTANDI [Suspect]
     Active Substance: ENZALUTAMIDE
     Route: 048

REACTIONS (18)
  - Asthenia [Unknown]
  - Hot flush [Unknown]
  - Flushing [Unknown]
  - Fatigue [Unknown]
  - Fatigue [Unknown]
  - Nasopharyngitis [Unknown]
  - Constipation [Unknown]
  - Hot flush [Unknown]
  - Asthenia [Unknown]
  - Respiratory tract infection [Unknown]
  - Hypertension [Unknown]
  - Fatigue [Unknown]
  - Gastric disorder [Unknown]
  - Flatulence [Unknown]
  - Sinusitis [Unknown]
  - Weight decreased [Unknown]
  - Muscular weakness [Unknown]
  - Muscle fatigue [Unknown]

NARRATIVE: CASE EVENT DATE: 20170119
